FAERS Safety Report 9893504 (Version 2)
Quarter: 2014Q1

REPORT INFORMATION
  Report Type: Report from Study
  Country: CA (occurrence: CA)
  Receive Date: 20140213
  Receipt Date: 20140213
  Transmission Date: 20141002
  Serious: Yes (Other)
  Sender: FDA-Public Use
  Company Number: PHHY2013CA009394

PATIENT
  Age: 62 Year
  Sex: Female

DRUGS (2)
  1. GLEEVEC [Suspect]
     Indication: CHRONIC MYELOID LEUKAEMIA
     Dosage: 400 MG, QD
     Route: 048
     Dates: start: 201212
  2. CRESTOR [Concomitant]
     Dosage: UNK UKN, UNK

REACTIONS (5)
  - Lung infection [Recovering/Resolving]
  - Tinea pedis [Unknown]
  - Fungal skin infection [Unknown]
  - Erythema [Unknown]
  - Dry skin [Unknown]
